FAERS Safety Report 19363397 (Version 1)
Quarter: 2021Q2

REPORT INFORMATION
  Report Type: Spontaneous
  Country: DE (occurrence: DE)
  Receive Date: 20210602
  Receipt Date: 20210602
  Transmission Date: 20210717
  Serious: Yes (Other)
  Sender: FDA-Public Use
  Company Number: DE-AMGEN-DEUSP2021081036

PATIENT
  Sex: Female

DRUGS (1)
  1. REPATHA [Suspect]
     Active Substance: EVOLOCUMAB
     Indication: TYPE IIA HYPERLIPIDAEMIA
     Dosage: UNK
     Route: 065

REACTIONS (7)
  - Sjogren^s syndrome [Recovered/Resolved]
  - Mucosal inflammation [Recovered/Resolved]
  - Urethritis [Recovered/Resolved]
  - Pyelonephritis [Recovered/Resolved]
  - Pain in jaw [Recovered/Resolved]
  - Vulvovaginal inflammation [Recovered/Resolved]
  - Colitis [Recovered/Resolved]
